FAERS Safety Report 9512435 (Version 1)
Quarter: 2013Q1

REPORT INFORMATION
  Report Type: Spontaneous
  Country: US (occurrence: None)
  Receive Date: 20130305
  Receipt Date: 20130305
  Transmission Date: 20140127
  Serious: Yes (Other)
  Sender: FDA-Public Use
  Company Number: 163-21880-12091916

PATIENT
  Age: 81 Year
  Sex: Female

DRUGS (1)
  1. REVLIMID [Suspect]
     Indication: PLASMA CELL MYELOMA
     Dosage: 10 MG, 21 IN 21 D, PO
     Dates: start: 20090625

REACTIONS (9)
  - White blood cell count decreased [None]
  - Platelet count decreased [None]
  - Joint swelling [None]
  - Lymphoedema [None]
  - Abdominal distension [None]
  - Diarrhoea [None]
  - Balance disorder [None]
  - Pruritus [None]
  - Pruritus [None]
